FAERS Safety Report 20734148 (Version 1)
Quarter: 2022Q2

REPORT INFORMATION
  Report Type: Spontaneous
  Country: TN (occurrence: TN)
  Receive Date: 20220421
  Receipt Date: 20220421
  Transmission Date: 20220721
  Serious: Yes (Other)
  Sender: FDA-Public Use
  Company Number: TN-MLMSERVICE-20220407-3489869-1

PATIENT
  Age: 65 Year
  Sex: Male

DRUGS (13)
  1. ATROPINE [Suspect]
     Active Substance: ATROPINE
     Indication: Neuromuscular blockade reversal
     Route: 065
  2. NEFOPAM [Suspect]
     Active Substance: NEFOPAM
     Indication: Postoperative analgesia
     Dosage: ADMINISTERED 30 MINUTES BEFORE THE END OF THE SURGERY AND EVERY 6 HOURS
     Route: 042
  3. NEFOPAM [Suspect]
     Active Substance: NEFOPAM
     Dosage: ADMINISTERED 30 MINUTES BEFORE THE END OF THE SURGERY AND EVERY 6 HOURS
     Route: 042
  4. FENTANYL [Suspect]
     Active Substance: FENTANYL
     Indication: Induction and maintenance of anaesthesia
     Route: 042
  5. FENTANYL [Suspect]
     Active Substance: FENTANYL
     Dosage: REINJECTIONS AS NEEDED
     Route: 042
  6. PROPOFOL [Suspect]
     Active Substance: PROPOFOL
     Indication: Induction of anaesthesia
     Route: 042
  7. OXYGEN [Concomitant]
     Active Substance: OXYGEN
     Indication: Maintenance of anaesthesia
     Dosage: MAINTAINED WITH AIR AND OXYGEN (50%: 50%) SUPPLEMENTED WITH ISOFLURANE 1 TO 1.5 MIN ALVEOLAR CON
     Route: 065
  8. ISOFLURANE [Concomitant]
     Active Substance: ISOFLURANE
     Indication: Maintenance of anaesthesia
     Dosage: ISOFLURANE 1 TO 1.5 MIN ALVEOLAR CONCENTRATION,
  9. ACETAMINOPHEN [Concomitant]
     Active Substance: ACETAMINOPHEN
     Indication: Postoperative analgesia
     Dosage: ADMINISTERED 30 MINUTES BEFORE THE END OF THE SURGERY AND EVERY 6 HOURS
     Route: 042
  10. ACETAMINOPHEN [Concomitant]
     Active Substance: ACETAMINOPHEN
     Dosage: ADMINISTERED 30 MINUTES BEFORE THE END OF THE SURGERY AND EVERY 6 HOURS
     Route: 042
  11. NEOSTIGMINE [Concomitant]
     Active Substance: NEOSTIGMINE
     Indication: Neuromuscular blockade reversal
  12. CISATRACURIUM [Concomitant]
     Active Substance: CISATRACURIUM
     Indication: Maintenance of anaesthesia
     Route: 042
  13. CISATRACURIUM [Concomitant]
     Active Substance: CISATRACURIUM
     Dosage: REINJECTIONS AS NEEDED
     Route: 042

REACTIONS (1)
  - Angle closure glaucoma [Recovered/Resolved]
